FAERS Safety Report 6871704-6 (Version None)
Quarter: 2010Q2

REPORT INFORMATION
  Report Type: 
  Country: None (occurrence: None)
  Receive Date: 20100528
  Receipt Date: 20100211
  Transmission Date: 20101027
  Serious: Yes (Other)
  Sender: FDA-Public Use
  Company Number: 2009310515

PATIENT
  Age: 81 Year
  Sex: Female
  Weight: 72.6 kg

DRUGS (6)
  1. TOVIAZ [Suspect]
     Indication: URINARY INCONTINENCE
     Dosage: 4 MG ; 8 MG, 1X/DAY
     Dates: start: 20091201, end: 20091219
  2. VALSARTAN [Concomitant]
  3. NORVASC [Concomitant]
  4. ACTONEL [Concomitant]
  5. ARICEPT [Concomitant]
  6. CARDURA [Concomitant]

REACTIONS (3)
  - DRUG INEFFECTIVE [None]
  - URINARY RETENTION [None]
  - URINARY TRACT INFECTION [None]
